FAERS Safety Report 4660622-X (Version None)
Quarter: 2005Q2

REPORT INFORMATION
  Report Type: 
  Country: None (occurrence: None)
  Receive Date: 20050425
  Receipt Date: 20041130
  Transmission Date: 20051028
  Serious: No
  Sender: FDA-Public Use
  Company Number: US102616

PATIENT
  Age: 75 Year
  Sex: Female
  Weight: 45.4 kg

DRUGS (14)
  1. SENSIPAR [Suspect]
     Indication: HYPERPARATHYROIDISM SECONDARY
     Dosage: 60 MG, 1 IN 1 DAYS,PO
     Route: 048
     Dates: start: 20040713
  2. VENOFER [Concomitant]
  3. PARICALCITOL [Concomitant]
  4. PRAVASTATIN SODIUM [Concomitant]
  5. EPOGEN [Concomitant]
  6. PHOSLO [Concomitant]
  7. SEVELAMER HCL [Concomitant]
  8. ZINC [Concomitant]
  9. RAMIPRIL [Concomitant]
  10. AMLODIPINE BESYLATE [Concomitant]
  11. ALPRAZOLAM [Concomitant]
  12. LEVOXYL [Concomitant]
  13. METOPROLOL TARTRATE [Concomitant]
  14. NEPHRO-VITE [Concomitant]

REACTIONS (1)
  - TREMOR [None]
